FAERS Safety Report 10168080 (Version 3)
Quarter: 2014Q4

REPORT INFORMATION
  Report Type: Spontaneous
  Country: US (occurrence: US)
  Receive Date: 20140512
  Receipt Date: 20141013
  Transmission Date: 20150528
  Serious: Yes (Hospitalization, Other)
  Sender: FDA-Public Use
  Company Number: US-BAYER-2014-068689

PATIENT
  Age: 22 Year
  Sex: Female
  Weight: 94.33 kg

DRUGS (1)
  1. MIRENA [Suspect]
     Active Substance: LEVONORGESTREL
     Indication: CONTRACEPTION
     Dosage: 20 MCG/24HR, CONT
     Route: 015
     Dates: start: 201206, end: 20130809

REACTIONS (14)
  - Infection [None]
  - Anxiety [None]
  - Embedded device [None]
  - Medical device pain [None]
  - Depression [None]
  - Scar [None]
  - Post procedural discomfort [Not Recovered/Not Resolved]
  - Device dislocation [None]
  - Injury [None]
  - Pain [None]
  - Genital haemorrhage [None]
  - Back pain [None]
  - Abdominal pain lower [None]
  - Abdominal pain upper [None]

NARRATIVE: CASE EVENT DATE: 201210
